FAERS Safety Report 7337863-6 (Version None)
Quarter: 2011Q1

REPORT INFORMATION
  Report Type: 
  Country: None (occurrence: None)
  Receive Date: 20110308
  Receipt Date: 20110224
  Transmission Date: 20110831
  Serious: Yes (Death)
  Sender: FDA-Public Use
  Company Number: MX-SANOFI-AVENTIS-2011SA012342

PATIENT
  Age: 75 Year
  Sex: Male

DRUGS (1)
  1. REGIVAS [Suspect]
     Route: 048

REACTIONS (1)
  - DEATH [None]
